FAERS Safety Report 16146722 (Version 1)
Quarter: 2019Q2

REPORT INFORMATION
  Report Type: Spontaneous
  Country: DK (occurrence: DK)
  Receive Date: 20190402
  Receipt Date: 20190402
  Transmission Date: 20190711
  Serious: Yes (Other)
  Sender: FDA-Public Use
  Company Number: DK-TEVA-2019-DK-1031156

PATIENT
  Age: 74 Year
  Sex: Male

DRUGS (2)
  1. FINASTERID ^ACTAVIS^ [Suspect]
     Active Substance: FINASTERIDE
     Indication: DYSURIA
     Dosage: 5 MILLIGRAM DAILY;
     Route: 048
     Dates: start: 20160226, end: 201804
  2. ALFUZOSIN ^STADA^ [Suspect]
     Active Substance: ALFUZOSIN
     Indication: DYSURIA
     Dosage: 10 MILLIGRAM DAILY;
     Route: 048
     Dates: start: 20160107, end: 20170410

REACTIONS (5)
  - Peripheral swelling [Recovered/Resolved]
  - Erythema [Recovered/Resolved]
  - Feeling hot [Recovered/Resolved]
  - Pulmonary embolism [Recovered/Resolved]
  - Deep vein thrombosis [Recovered/Resolved]

NARRATIVE: CASE EVENT DATE: 201703
